FAERS Safety Report 5729734-3 (Version None)
Quarter: 2008Q2

REPORT INFORMATION
  Report Type: 
  Country: None (occurrence: None)
  Receive Date: 20080506
  Receipt Date: 20080410
  Transmission Date: 20081010
  Serious: No
  Sender: FDA-Public Use
  Company Number: US-BOEHRINGER INGELHEIM GMBH, GERMANY-2008-BP-05887BP

PATIENT
  Sex: Female

DRUGS (9)
  1. SPIRIVA [Suspect]
     Indication: CHRONIC OBSTRUCTIVE PULMONARY DISEASE
     Route: 055
     Dates: start: 20060101
  2. XANAX [Concomitant]
  3. SINGULAIR [Concomitant]
  4. NEXIUM [Concomitant]
  5. COUMADIN [Concomitant]
  6. AMBIEN [Concomitant]
  7. SEREVENT [Concomitant]
  8. LIPITOR [Concomitant]
  9. FLEXERIL [Concomitant]

REACTIONS (2)
  - DRUG INEFFECTIVE [None]
  - THROAT TIGHTNESS [None]
